FAERS Safety Report 6097525-2 (Version None)
Quarter: 2009Q1

REPORT INFORMATION
  Report Type: 
  Country: None (occurrence: None)
  Receive Date: 20090227
  Receipt Date: 20081017
  Transmission Date: 20090719
  Serious: No
  Sender: FDA-Public Use
  Company Number: A0748224A

PATIENT
  Age: 49 Year
  Sex: Male
  Weight: 80.5 kg

DRUGS (1)
  1. IMITREX [Suspect]
     Indication: DRUG USE FOR UNKNOWN INDICATION
     Route: 065

REACTIONS (3)
  - CHEST DISCOMFORT [None]
  - DRUG HYPERSENSITIVITY [None]
  - DYSPNOEA [None]
